FAERS Safety Report 19062561 (Version 2)
Quarter: 2021Q2

REPORT INFORMATION
  Report Type: Report from Study
  Country: US (occurrence: US)
  Receive Date: 20210326
  Receipt Date: 20210420
  Transmission Date: 20210717
  Serious: Yes (Other)
  Sender: FDA-Public Use
  Company Number: US-TAKEDA-US201819103

PATIENT
  Age: 52 Year
  Sex: Female

DRUGS (7)
  1. TEDUGLUTIDE [Suspect]
     Active Substance: TEDUGLUTIDE
     Indication: SHORT-BOWEL SYNDROME
     Dosage: 5 MILLIGRAM, QD
     Route: 050
     Dates: start: 20130328, end: 2019
  2. TEDUGLUTIDE [Suspect]
     Active Substance: TEDUGLUTIDE
     Indication: SHORT-BOWEL SYNDROME
     Dosage: 5 MILLIGRAM, QD
     Route: 050
     Dates: start: 20130328, end: 2019
  3. BABY ASPIRIN [Concomitant]
     Active Substance: ASPIRIN
     Indication: FIBROMUSCULAR DYSPLASIA
     Dosage: UNK
     Route: 065
  4. HEPARIN [Concomitant]
     Active Substance: HEPARIN SODIUM
     Indication: FIBROMUSCULAR DYSPLASIA
     Route: 065
  5. TEDUGLUTIDE [Suspect]
     Active Substance: TEDUGLUTIDE
     Indication: SHORT-BOWEL SYNDROME
     Dosage: 5 MILLIGRAM, QD
     Route: 050
     Dates: start: 20130328, end: 2019
  6. TEDUGLUTIDE [Suspect]
     Active Substance: TEDUGLUTIDE
     Indication: SHORT-BOWEL SYNDROME
     Dosage: 5 MILLIGRAM, QD
     Route: 050
     Dates: start: 20130328, end: 2019
  7. PLAVIX [Concomitant]
     Active Substance: CLOPIDOGREL BISULFATE
     Indication: FIBROMUSCULAR DYSPLASIA
     Route: 065

REACTIONS (4)
  - Stoma site haemorrhage [Unknown]
  - Stoma complication [Not Recovered/Not Resolved]
  - Abdominal pain [Unknown]
  - Bowel movement irregularity [Recovered/Resolved]

NARRATIVE: CASE EVENT DATE: 20210315
